FAERS Safety Report 14334327 (Version 5)
Quarter: 2018Q3

REPORT INFORMATION
  Report Type: Report from Study
  Country: FR (occurrence: FR)
  Receive Date: 20171228
  Receipt Date: 20180808
  Transmission Date: 20181010
  Serious: Yes (Hospitalization)
  Sender: FDA-Public Use
  Company Number: MQ-VIIV HEALTHCARE LIMITED-FR2017GSK199325

PATIENT
  Age: 26 Year
  Sex: Female

DRUGS (6)
  1. KIVEXA [Suspect]
     Active Substance: ABACAVIR SULFATE\LAMIVUDINE
     Dosage: 1 DF, QD
     Route: 048
     Dates: start: 20141203, end: 20160729
  2. REYATAZ [Suspect]
     Active Substance: ATAZANAVIR SULFATE
     Indication: HIV INFECTION
     Dosage: 300 MG, QD
     Route: 048
     Dates: start: 20140203, end: 20150520
  3. DOLUTEGRAVIR [Suspect]
     Active Substance: DOLUTEGRAVIR
     Indication: HIV INFECTION
     Dosage: 50 MG, 1D
     Route: 048
     Dates: start: 20150814, end: 20160729
  4. PREZISTA [Suspect]
     Active Substance: DARUNAVIR ETHANOLATE
     Indication: HIV INFECTION
     Dosage: 800 MG, QD
     Route: 048
     Dates: start: 20150521, end: 20150917
  5. NORVIR [Suspect]
     Active Substance: RITONAVIR
     Indication: HIV INFECTION
     Dosage: 100 MG, QD
     Route: 048
     Dates: start: 20130329, end: 20150917
  6. SPECIAFOLDINE [Concomitant]
     Active Substance: FOLIC ACID
     Indication: PREGNANCY
     Dosage: UNK UNK, QD
     Dates: start: 20141203, end: 20151026

REACTIONS (3)
  - Live birth [Unknown]
  - Virologic failure [Unknown]
  - Exposure during pregnancy [Unknown]

NARRATIVE: CASE EVENT DATE: 20150908
